FAERS Safety Report 12295071 (Version 1)
Quarter: 2016Q2

REPORT INFORMATION
  Report Type: Spontaneous
  Country: JP (occurrence: JP)
  Receive Date: 20160422
  Receipt Date: 20160422
  Transmission Date: 20160815
  Serious: Yes (Hospitalization, Other)
  Sender: FDA-Public Use
  Company Number: JP-GLAXOSMITHKLINE-JP2016JPN053027

PATIENT
  Age: 73 Year
  Sex: Male
  Weight: 70 kg

DRUGS (13)
  1. BAYNAS [Suspect]
     Active Substance: RAMATROBAN
     Dosage: UNK, PRN
     Dates: start: 20130103, end: 20130105
  2. PURSENNID [Concomitant]
     Active Substance: SENNOSIDES A AND B
  3. SKYRON [Concomitant]
     Dosage: UNK, PRN
  4. AVOLVE [Suspect]
     Active Substance: DUTASTERIDE
     Route: 048
  5. BAYNAS [Suspect]
     Active Substance: RAMATROBAN
     Dosage: UNK, PRN
     Dates: start: 20130109
  6. BAYNAS [Suspect]
     Active Substance: RAMATROBAN
     Dosage: UNK, PRN
     Dates: start: 20120904, end: 20120912
  7. GASTER [Concomitant]
     Active Substance: FAMOTIDINE
  8. MAGMITT [Concomitant]
     Active Substance: MAGNESIUM OXIDE
  9. ECARD [Concomitant]
     Active Substance: CANDESARTAN CILEXETIL\HYDROCHLOROTHIAZIDE
  10. AZUCURENIN [Concomitant]
  11. MIYA-BM [Concomitant]
     Active Substance: CLOSTRIDIUM BUTYRICUM SPORES STRAIN M-55
  12. ARTIST [Concomitant]
     Active Substance: CARVEDILOL
  13. HARNAL [Concomitant]
     Active Substance: TAMSULOSIN HYDROCHLORIDE

REACTIONS (10)
  - Diverticulum intestinal [Unknown]
  - Nausea [Unknown]
  - Gallbladder disorder [Unknown]
  - Feeling abnormal [Unknown]
  - Malaise [Recovering/Resolving]
  - Jaundice [Recovering/Resolving]
  - Upper respiratory tract inflammation [Unknown]
  - Drug-induced liver injury [Unknown]
  - Abdominal pain [Recovering/Resolving]
  - Liver disorder [Unknown]

NARRATIVE: CASE EVENT DATE: 20120905
